FAERS Safety Report 19493288 (Version 2)
Quarter: 2021Q3

REPORT INFORMATION
  Report Type: Spontaneous
  Country: IT (occurrence: IT)
  Receive Date: 20210705
  Receipt Date: 20210727
  Transmission Date: 20211014
  Serious: Yes (Hospitalization, Other)
  Sender: FDA-Public Use
  Company Number: IT-PFIZER INC-2021665348

PATIENT
  Age: 38 Year
  Sex: Female
  Weight: 84 kg

DRUGS (1)
  1. LOETTE [Suspect]
     Active Substance: ETHINYL ESTRADIOL\LEVONORGESTREL
     Indication: CONTRACEPTION
     Dosage: MONTHLY (21 CAPSULES ? 7 DAYS BREAK)
     Dates: start: 200912, end: 20210529

REACTIONS (5)
  - Maternal exposure during pregnancy [Unknown]
  - Abdominal pain [Unknown]
  - Adenomyosis [Unknown]
  - Drug ineffective [Unknown]
  - Premature separation of placenta [Unknown]

NARRATIVE: CASE EVENT DATE: 2021
